FAERS Safety Report 10411667 (Version 1)
Quarter: 2014Q3

REPORT INFORMATION
  Report Type: Report from Study
  Country: ZA (occurrence: ZA)
  Receive Date: 20140827
  Receipt Date: 20140827
  Transmission Date: 20150326
  Serious: Yes (Hospitalization, Other)
  Sender: FDA-Public Use
  Company Number: ZA-BAYER-2014-082050

PATIENT
  Sex: Female

DRUGS (2)
  1. BETACOMFORT [Suspect]
     Active Substance: DEVICE
     Indication: DEVICE THERAPY
  2. BETAFERON [Suspect]
     Active Substance: INTERFERON BETA-1B

REACTIONS (16)
  - Multiple sclerosis relapse [Recovering/Resolving]
  - Amniotic fluid volume decreased [None]
  - Injection site pain [None]
  - Multiple sclerosis relapse [None]
  - Hospitalisation [None]
  - Needle issue [None]
  - Weight increased [None]
  - Maternal exposure during pregnancy [None]
  - Musculoskeletal disorder [Recovering/Resolving]
  - Limb discomfort [Recovering/Resolving]
  - Weight increased [None]
  - Eye pain [None]
  - Diplegia [Recovering/Resolving]
  - Multiple sclerosis relapse [None]
  - Injection site reaction [Recovering/Resolving]
  - Coordination abnormal [Recovering/Resolving]

NARRATIVE: CASE EVENT DATE: 2007
